FAERS Safety Report 9800054 (Version 2)
Quarter: 2014Q1

REPORT INFORMATION
  Report Type: Spontaneous
  Country: US (occurrence: US)
  Receive Date: 20140106
  Receipt Date: 20140106
  Transmission Date: 20141002
  Serious: No
  Sender: FDA-Public Use
  Company Number: US-GILEAD-2010-0032058

PATIENT
  Age: 77 Year
  Sex: Female
  Weight: 86.18 kg

DRUGS (13)
  1. LETAIRIS [Suspect]
     Indication: PULMONARY ARTERIAL HYPERTENSION
     Route: 048
     Dates: start: 20100804
  2. LASIX [Concomitant]
  3. LISINOPRIL [Concomitant]
  4. HYDRALAZINE [Concomitant]
  5. WARFARIN [Concomitant]
  6. DILTIAZEM [Concomitant]
  7. LOVASTATIN [Concomitant]
  8. ALBUTEROL [Concomitant]
  9. ZYRTEC [Concomitant]
  10. NASONEX [Concomitant]
  11. TYLENOL [Concomitant]
  12. POTASSIUM [Concomitant]
  13. MULTIVITAMIN [Concomitant]

REACTIONS (6)
  - Malaise [Unknown]
  - Aphagia [Unknown]
  - Dehydration [Unknown]
  - Fatigue [Unknown]
  - Weight decreased [Unknown]
  - Local swelling [Unknown]
